FAERS Safety Report 5417276-4 (Version None)
Quarter: 2007Q3

REPORT INFORMATION
  Report Type: 
  Country: None (occurrence: None)
  Receive Date: 20070718
  Receipt Date: 20060623
  Transmission Date: 20080115
  Serious: Yes (Death, Other)
  Sender: FDA-Public Use
  Company Number: 2005137203

PATIENT
  Age: 51 Year
  Sex: Male
  Weight: 103.8737 kg

DRUGS (1)
  1. CELEBREX [Suspect]
     Indication: BACK PAIN
     Dates: start: 19990101, end: 20040928

REACTIONS (1)
  - MYOCARDIAL INFARCTION [None]
